FAERS Safety Report 7391428-9 (Version None)
Quarter: 2011Q2

REPORT INFORMATION
  Report Type: 
  Country: None (occurrence: None)
  Receive Date: 20110404
  Receipt Date: 20110317
  Transmission Date: 20111010
  Serious: No
  Sender: FDA-Public Use
  Company Number: US-ROXANE LABORATORIES, INC.-2011-RO-00391RO

PATIENT
  Age: 65 Year
  Sex: Female

DRUGS (3)
  1. ALBUTEROL [Concomitant]
     Indication: EMPHYSEMA
     Route: 055
  2. FLOVENT [Concomitant]
     Indication: EMPHYSEMA
     Route: 055
  3. CLOTRIMAZOLE [Suspect]
     Indication: ORAL FUNGAL INFECTION
     Route: 048
     Dates: start: 20110220, end: 20110223

REACTIONS (6)
  - LOSS OF CONSCIOUSNESS [None]
  - HYPERVENTILATION [None]
  - INCONTINENCE [None]
  - HEART RATE INCREASED [None]
  - PALPITATIONS [None]
  - DIZZINESS [None]
